FAERS Safety Report 6938386-6 (Version None)
Quarter: 2010Q3

REPORT INFORMATION
  Report Type: 
  Country: None (occurrence: None)
  Receive Date: 20100824
  Receipt Date: 20100818
  Transmission Date: 20110219
  Serious: Yes (Other)
  Sender: FDA-Public Use
  Company Number: BR-PFIZER INC-2010099607

PATIENT
  Age: 30 Year
  Sex: Male

DRUGS (2)
  1. GEODON [Suspect]
     Indication: SCHIZOPHRENIA
     Dosage: 80 MG, DAILY
     Route: 048
  2. OLCADIL [Concomitant]
     Indication: DRUG DEPENDENCE
     Dosage: UNK

REACTIONS (14)
  - ABDOMINAL DISCOMFORT [None]
  - AGITATION [None]
  - ANXIETY [None]
  - CHEST DISCOMFORT [None]
  - DRUG DEPENDENCE [None]
  - FEELING ABNORMAL [None]
  - HEADACHE [None]
  - INITIAL INSOMNIA [None]
  - INSOMNIA [None]
  - LAZINESS [None]
  - MALAISE [None]
  - NEGATIVE THOUGHTS [None]
  - SOMNOLENCE [None]
  - TREMOR [None]
